FAERS Safety Report 17858096 (Version 1)
Quarter: 2020Q2

REPORT INFORMATION
  Report Type: Spontaneous
  Country: FR (occurrence: FR)
  Receive Date: 20200604
  Receipt Date: 20200604
  Transmission Date: 20200714
  Serious: Yes (Other)
  Sender: FDA-Public Use
  Company Number: FR-ROCHE-2613273

PATIENT
  Age: 97 Year
  Sex: Male

DRUGS (2)
  1. MORPHINE [Suspect]
     Active Substance: MORPHINE
     Indication: SEDATIVE THERAPY
     Route: 042
     Dates: start: 20200407, end: 20200409
  2. RIVOTRIL [Suspect]
     Active Substance: CLONAZEPAM
     Indication: SEDATIVE THERAPY
     Route: 042
     Dates: start: 20200407, end: 20200409

REACTIONS (1)
  - Myoclonus [Recovered/Resolved]

NARRATIVE: CASE EVENT DATE: 20200409
